FAERS Safety Report 8463511-8 (Version None)
Quarter: 2012Q2

REPORT INFORMATION
  Report Type: 
  Country: None (occurrence: None)
  Receive Date: 20120625
  Receipt Date: 20120621
  Transmission Date: 20120825
  Serious: Yes (Other)
  Sender: FDA-Public Use
  Company Number: US-PFIZER INC-2012137514

PATIENT
  Sex: Female
  Weight: 119 kg

DRUGS (11)
  1. CELEBREX [Suspect]
     Indication: PAIN
  2. GABAPENTIN [Concomitant]
     Indication: NEURALGIA
     Dosage: 300 MG, AS NEEDED
  3. SKELAXIN [Concomitant]
     Indication: NEURALGIA
     Dosage: 800 MG, AS NEEDED
     Route: 048
  4. MOBIC [Suspect]
     Indication: ARTHRITIS
     Dosage: 7.5 MG DAILY DOSE
     Route: 048
     Dates: start: 20101020
  5. BUSPAR [Concomitant]
     Indication: ANXIETY
     Dosage: 5 MG, AS NEEDED
     Dates: start: 20101005
  6. SYNTHROID [Concomitant]
     Indication: THYROID DISORDER
     Dosage: 100 UG, 1X/DAY
     Route: 048
     Dates: start: 20100925
  7. SYNTHROID [Concomitant]
     Indication: HYPOTHYROIDISM
  8. VITAMIN B-12 [Concomitant]
     Indication: THYROID DISORDER
     Dosage: 2500-5000 UG AS NEEDED
  9. CELEBREX [Suspect]
     Indication: FIBROMYALGIA
     Dosage: UNK
     Route: 048
  10. CELEBREX [Suspect]
     Indication: ARTHRITIS
     Dosage: UNK
     Route: 048
     Dates: start: 20100101
  11. MOBIC [Suspect]
     Indication: FIBROMYALGIA
     Dosage: 7.5 MG, 1X/DAY
     Route: 048
     Dates: start: 20100810, end: 20100101

REACTIONS (6)
  - DYSSTASIA [None]
  - OEDEMA PERIPHERAL [None]
  - FALL [None]
  - URINARY INCONTINENCE [None]
  - PAIN [None]
  - ROAD TRAFFIC ACCIDENT [None]
